FAERS Safety Report 11844781 (Version 3)
Quarter: 2016Q1

REPORT INFORMATION
  Report Type: Spontaneous
  Country: RU (occurrence: RU)
  Receive Date: 20151217
  Receipt Date: 20160204
  Transmission Date: 20160526
  Serious: Yes (Hospitalization, Other)
  Sender: FDA-Public Use
  Company Number: RU-NOVOPROD-473361

PATIENT
  Age: 47 Year
  Sex: Male
  Weight: 60 kg

DRUGS (8)
  1. VEROSPILACTONE [Concomitant]
     Indication: CHRONIC HEPATITIS C
     Dosage: 25 MG, QD
     Route: 048
     Dates: start: 20151203
  2. COMBILIPEN                         /00274301/ [Concomitant]
     Indication: POLYNEUROPATHY
     Dosage: 2 ML, QD
     Route: 030
     Dates: start: 20151203
  3. LANTUS [Concomitant]
     Active Substance: INSULIN GLARGINE
     Indication: TYPE 1 DIABETES MELLITUS
     Dosage: 28 U, QD
     Route: 058
  4. NOVORAPID [Suspect]
     Active Substance: INSULIN ASPART
     Indication: TYPE 1 DIABETES MELLITUS
     Dosage: 36 U, QD
     Route: 058
     Dates: start: 2011
  5. HEPTRAL                            /00882301/ [Concomitant]
     Indication: CHRONIC HEPATITIS C
     Dosage: 400 MG, QID
     Route: 048
     Dates: start: 20151203
  6. LANTUS [Concomitant]
     Active Substance: INSULIN GLARGINE
     Dosage: 30 U, QD
     Route: 058
     Dates: start: 20151106
  7. NOVORAPID [Suspect]
     Active Substance: INSULIN ASPART
     Dosage: 50 - 60 UNITS PER DAY
     Route: 058
     Dates: start: 201508
  8. NICOTINIC ACID [Concomitant]
     Active Substance: NIACIN
     Dosage: 10 MG, QD
     Route: 030
     Dates: start: 20151203

REACTIONS (3)
  - Hepatitis C [Recovering/Resolving]
  - Blood glucose increased [Not Recovered/Not Resolved]
  - Drug ineffective [Not Recovered/Not Resolved]

NARRATIVE: CASE EVENT DATE: 201508
